FAERS Safety Report 7015220-X (Version None)
Quarter: 2010Q3

REPORT INFORMATION
  Report Type: 
  Country: None (occurrence: None)
  Receive Date: 20100927
  Receipt Date: 20100922
  Transmission Date: 20110219
  Serious: Yes (Hospitalization)
  Sender: FDA-Public Use
  Company Number: DE-SANOFI-AVENTIS-2010SA050679

PATIENT
  Age: 74 Year
  Sex: Male
  Weight: 70 kg

DRUGS (9)
  1. MULTAQ [Suspect]
     Indication: ATRIAL FLUTTER
     Route: 048
     Dates: start: 20100601, end: 20100601
  2. MARCUMAR [Concomitant]
     Indication: ATRIAL FIBRILLATION
     Dosage: ACCORDING TO INR: FR 1/4, SA 1/2, SO 1/4
     Route: 048
     Dates: start: 20100601
  3. MARCUMAR [Concomitant]
     Dosage: ACCORDING TO INR: FR 1/4, SA 1/2, SO 1/4
     Route: 048
     Dates: start: 20100601
  4. LOCOL [Concomitant]
     Route: 048
     Dates: start: 20040101
  5. ACETYLSALICYLIC ACID [Concomitant]
     Route: 048
     Dates: start: 20040101
  6. METOPROLOL SUCCINATE [Concomitant]
     Route: 048
     Dates: start: 20040101, end: 20100601
  7. METOPROLOL SUCCINATE [Concomitant]
     Route: 048
     Dates: start: 20040101, end: 20100601
  8. METOPROLOL SUCCINATE [Concomitant]
     Route: 048
     Dates: start: 20100601
  9. METOPROLOL SUCCINATE [Concomitant]
     Route: 048
     Dates: start: 20100601

REACTIONS (6)
  - CARDIAC FAILURE [None]
  - DYSPNOEA [None]
  - OEDEMA PERIPHERAL [None]
  - PLEURAL EFFUSION [None]
  - SPEECH DISORDER [None]
  - WEIGHT INCREASED [None]
